FAERS Safety Report 17970792 (Version 1)
Quarter: 2020Q3

REPORT INFORMATION
  Report Type: Spontaneous
  Country: NL (occurrence: PL)
  Receive Date: 20200701
  Receipt Date: 20200701
  Transmission Date: 20201103
  Serious: Yes (Hospitalization)
  Sender: FDA-Public Use
  Company Number: PL-FRESENIUS KABI-FK202003734

PATIENT
  Age: 69 Year
  Sex: Male

DRUGS (7)
  1. PACLITAXEL (MANUFACTURER UNKNOWN) [Suspect]
     Active Substance: PACLITAXEL
     Dosage: 160 UNK
     Route: 042
     Dates: start: 20200326
  2. PACLITAXEL (MANUFACTURER UNKNOWN) [Suspect]
     Active Substance: PACLITAXEL
     Route: 042
     Dates: start: 20200416
  3. CARBOPLATIN (MANUFACTURER UNKNOWN) [Suspect]
     Active Substance: CARBOPLATIN
     Dosage: AUC OF 4 MG/ML/MIN
     Route: 042
     Dates: start: 20200326
  4. CARBOPLATIN (MANUFACTURER UNKNOWN) [Suspect]
     Active Substance: CARBOPLATIN
     Dosage: AUC OF 4 MG/ML/MIN, Q3W
     Route: 042
     Dates: start: 20200416
  5. PACLITAXEL (MANUFACTURER UNKNOWN) [Suspect]
     Active Substance: PACLITAXEL
     Indication: LUNG SQUAMOUS CELL CARCINOMA STAGE IV
     Dosage: 500 MG/M2, Q3W
     Route: 042
     Dates: start: 20200228, end: 20200326
  6. CARBOPLATIN (MANUFACTURER UNKNOWN) [Suspect]
     Active Substance: CARBOPLATIN
     Indication: LUNG SQUAMOUS CELL CARCINOMA STAGE IV
     Dosage: AUC OF 5 MG/ML/MIN, Q3W
     Route: 042
     Dates: start: 20200228, end: 20200326
  7. REGN 2810 [Suspect]
     Active Substance: CEMIPLIMAB
     Indication: LUNG SQUAMOUS CELL CARCINOMA STAGE IV
     Dosage: 350 MG, Q3W
     Route: 042
     Dates: start: 20200228

REACTIONS (2)
  - Gastroenteritis [Recovered/Resolved]
  - Diarrhoea [Recovered/Resolved]

NARRATIVE: CASE EVENT DATE: 20200308
